FAERS Safety Report 6348923-0 (Version None)
Quarter: 2009Q3

REPORT INFORMATION
  Report Type: 
  Country: None (occurrence: None)
  Receive Date: 20090911
  Receipt Date: 20090904
  Transmission Date: 20100115
  Serious: Yes (Other)
  Sender: FDA-Public Use
  Company Number: SE-AVENTIS-200919984GDDC

PATIENT
  Age: 35 Year
  Sex: Female
  Weight: 54 kg

DRUGS (3)
  1. INSULIN GLULISINE [Suspect]
     Dosage: DOSE: BASAL INFUSION
     Dates: start: 20080421, end: 20080630
  2. INSULIN PUMP NOS [Suspect]
  3. UNKNOWN DRUG [Concomitant]

REACTIONS (1)
  - ACETONAEMIA [None]
